FAERS Safety Report 22973292 (Version 3)
Quarter: 2023Q4

REPORT INFORMATION
  Report Type: Report from Study
  Country: US (occurrence: US)
  Receive Date: 20230922
  Receipt Date: 20231010
  Transmission Date: 20240110
  Serious: Yes (Hospitalization)
  Sender: FDA-Public Use
  Company Number: US-AVEO ONCOLOGY-2023-AVEO-US000723

PATIENT
  Age: 59 Year
  Sex: Male
  Weight: 114.1 kg

DRUGS (8)
  1. TIVOZANIB [Suspect]
     Active Substance: TIVOZANIB
     Indication: Renal cell carcinoma
     Dosage: 1.34 MG ONCE DAILY FOR 21 DAYS WITH 7 DAYS OFF TREATMENT (28-DAY CYCLE)
     Route: 048
     Dates: start: 20230601, end: 20230718
  2. TIVOZANIB [Suspect]
     Active Substance: TIVOZANIB
     Dosage: 0.89 MG ONCE DAILY FOR 21 DAYS WITH 7 DAYS OFF TREATMENT (28-DAY CYCLE)
     Route: 048
     Dates: start: 20230725
  3. AMLODIPINE [Concomitant]
     Active Substance: AMLODIPINE BESYLATE
     Indication: Hypertension
     Dosage: UNK
     Dates: start: 20230613
  4. LIDOCAINE [Concomitant]
     Active Substance: LIDOCAINE
     Indication: Stomatitis
     Dosage: UNK
     Dates: start: 20230606
  5. CLOBETASOL [Concomitant]
     Active Substance: CLOBETASOL
     Indication: Stomatitis
     Dosage: UNK
     Dates: start: 20230705
  6. CLOTRIMAZOLE [Concomitant]
     Active Substance: CLOTRIMAZOLE
     Indication: Stomatitis
     Dosage: UNK
     Dates: start: 20230705
  7. DEXAMETHASONE [Concomitant]
     Active Substance: DEXAMETHASONE
     Indication: Stomatitis
     Dosage: UNK
     Dates: start: 20230615
  8. LEVOTHYROXINE SODIUM [Concomitant]
     Active Substance: LEVOTHYROXINE SODIUM
     Indication: Hypothyroidism
     Dosage: UNK
     Dates: start: 20230601

REACTIONS (1)
  - Peritonsillar abscess [Recovered/Resolved]

NARRATIVE: CASE EVENT DATE: 20230718
